FAERS Safety Report 8845927 (Version 1)
Quarter: 2012Q4

REPORT INFORMATION
  Report Type: 
  Country: US (occurrence: US)
  Receive Date: 20121017
  Receipt Date: 20121017
  Transmission Date: 20130627
  Serious: Yes (Hospitalization)
  Sender: FDA-Public Use
  Company Number: US-ROCHE-1141397

PATIENT
  Sex: Male

DRUGS (1)
  1. LUCENTIS [Suspect]
     Indication: HISTOPLASMOSIS
     Route: 050
     Dates: start: 20110520

REACTIONS (7)
  - Pneumonia aspiration [Unknown]
  - Hernia [Unknown]
  - Atrial fibrillation [Unknown]
  - Ocular hyperaemia [Unknown]
  - Scar [Unknown]
  - Ocular hypertension [Unknown]
  - Eye haemorrhage [Unknown]
